FAERS Safety Report 4936421-8 (Version None)
Quarter: 2006Q1

REPORT INFORMATION
  Report Type: 
  Country: None (occurrence: None)
  Receive Date: 20060302
  Receipt Date: 20060207
  Transmission Date: 20060701
  Serious: Yes (Other)
  Sender: FDA-Public Use
  Company Number: US200602002196

PATIENT
  Age: 54 Year
  Sex: Female

DRUGS (2)
  1. CYMBALTA [Suspect]
     Dosage: SEE IMAGE
     Dates: end: 20051214
  2. CYMBALTA [Suspect]
     Dosage: SEE IMAGE
     Dates: start: 20050503

REACTIONS (3)
  - ALANINE AMINOTRANSFERASE INCREASED [None]
  - ASPARTATE AMINOTRANSFERASE INCREASED [None]
  - GAMMA-GLUTAMYLTRANSFERASE INCREASED [None]
